FAERS Safety Report 8403019-9 (Version None)
Quarter: 2012Q2

REPORT INFORMATION
  Report Type: 
  Country: None (occurrence: None)
  Receive Date: 20120601
  Receipt Date: 20120522
  Transmission Date: 20120825
  Serious: Yes (Death)
  Sender: FDA-Public Use
  Company Number: US-ELI_LILLY_AND_COMPANY-US201105000613

PATIENT
  Sex: Female

DRUGS (4)
  1. FORTEO [Suspect]
     Dosage: 20 UG, QD
     Route: 058
  2. LEVOTHYROXINE SODIUM [Concomitant]
     Dosage: 750 MG, TWICE A DAY
  3. FORTEO [Suspect]
     Dosage: 20 UG, QD
     Route: 058
  4. FORTEO [Suspect]
     Indication: OSTEOPOROSIS
     Dosage: 20 UG, DAILY (1/D)
     Route: 058
     Dates: start: 20110201

REACTIONS (7)
  - DEATH [None]
  - FALL [None]
  - SKIN INJURY [None]
  - MALAISE [None]
  - ASTHENIA [None]
  - ADVERSE EVENT [None]
  - DIZZINESS [None]
